FAERS Safety Report 22071507 (Version 1)
Quarter: 2023Q1

REPORT INFORMATION
  Report Type: Spontaneous
  Country: JP (occurrence: JP)
  Receive Date: 20230307
  Receipt Date: 20230307
  Transmission Date: 20230417
  Serious: Yes (Hospitalization)
  Sender: FDA-Public Use
  Company Number: JP-TEVA-2023-JP-2863327

PATIENT
  Age: 29 Year
  Sex: Male

DRUGS (3)
  1. OLANZAPINE [Suspect]
     Active Substance: OLANZAPINE
     Indication: Schizoaffective disorder
     Dosage: INITIAL DOSAGE NOT STATED
     Route: 065
  2. OLANZAPINE [Suspect]
     Active Substance: OLANZAPINE
     Dosage: 10 MILLIGRAM DAILY;
     Route: 065
  3. CLOZAPINE [Suspect]
     Active Substance: CLOZAPINE
     Indication: Schizoaffective disorder
     Dosage: 225 MILLIGRAM DAILY;
     Route: 065

REACTIONS (10)
  - Cardiomyopathy [Recovering/Resolving]
  - Catatonia [Recovering/Resolving]
  - Rhabdomyolysis [Recovering/Resolving]
  - Drug withdrawal syndrome [Recovering/Resolving]
  - Hyperthermia [Recovering/Resolving]
  - Cataplexy [Recovering/Resolving]
  - Stupor [Recovering/Resolving]
  - Negativism [Recovering/Resolving]
  - Muscle rigidity [Recovering/Resolving]
  - Drug ineffective [Unknown]
